FAERS Safety Report 5958112-7 (Version None)
Quarter: 2008Q4

REPORT INFORMATION
  Report Type: 
  Country: None (occurrence: None)
  Receive Date: 20081119
  Receipt Date: 20081110
  Transmission Date: 20090506
  Serious: Yes (Other)
  Sender: FDA-Public Use
  Company Number: US-BRISTOL-MYERS SQUIBB COMPANY-14400840

PATIENT
  Age: 33 Year
  Sex: Male

DRUGS (5)
  1. ARIPIPRAZOLE [Suspect]
     Indication: IRRITABILITY
     Dosage: DOSE INCREASED TO 10MG/DAY.
  2. ARIPIPRAZOLE [Interacting]
     Indication: INSOMNIA
     Dosage: DOSE INCREASED TO 10MG/DAY.
  3. OLANZAPINE [Interacting]
     Indication: AGGRESSION
  4. BENZTROPINE MESYLATE [Concomitant]
     Indication: IRRITABILITY
  5. BENZTROPINE MESYLATE [Concomitant]
     Indication: INSOMNIA

REACTIONS (2)
  - DRUG INTERACTION [None]
  - NEUROLEPTIC MALIGNANT SYNDROME [None]
